FAERS Safety Report 9854008 (Version 2)
Quarter: 2014Q1

REPORT INFORMATION
  Report Type: Spontaneous
  Country: US (occurrence: US)
  Receive Date: 20140129
  Receipt Date: 20140203
  Transmission Date: 20141002
  Serious: No
  Sender: FDA-Public Use
  Company Number: US-BAXTER-2014BAX004360

PATIENT
  Sex: Male

DRUGS (1)
  1. 0.9% SODIUM CHLORIDE INJECTION [Suspect]
     Indication: ACCIDENTAL EXPOSURE TO PRODUCT
     Route: 061

REACTIONS (3)
  - Accidental exposure to product [Recovered/Resolved]
  - Device leakage [Unknown]
  - No adverse event [Recovered/Resolved]
